FAERS Safety Report 9184570 (Version 1)
Quarter: 2012Q4

REPORT INFORMATION
  Report Type: 
  Country: US (occurrence: US)
  Receive Date: 20121101
  Receipt Date: 20121101
  Transmission Date: 20130627
  Serious: Yes (Other)
  Sender: FDA-Public Use
  Company Number: US-PFIZER INC-2012271213

PATIENT
  Age: 54 Year
  Sex: Male
  Weight: 100 kg

DRUGS (5)
  1. LIPITOR [Suspect]
     Indication: HIGH CHOLESTEROL
     Dosage: 20 mg, once a day
     Route: 048
  2. ASPIRIN [Concomitant]
     Dosage: UNK, once a day
  3. ATENOLOL [Concomitant]
     Dosage: UNK, once a day
  4. ZETIA [Concomitant]
     Dosage: UNK, once a day
  5. LISINOPRIL [Concomitant]
     Dosage: UNK, once a day

REACTIONS (1)
  - Myocardial infarction [Unknown]
